FAERS Safety Report 12426923 (Version 2)
Quarter: 2016Q2

REPORT INFORMATION
  Report Type: Spontaneous
  Country: US (occurrence: US)
  Receive Date: 20160601
  Receipt Date: 20160627
  Transmission Date: 20160815
  Serious: Yes (Other)
  Sender: FDA-Public Use
  Company Number: US-ELI_LILLY_AND_COMPANY-US201605008926

PATIENT
  Age: 77 Year
  Sex: Female
  Weight: 50.34 kg

DRUGS (5)
  1. FLONASE                            /00908302/ [Concomitant]
     Active Substance: MOMETASONE FUROATE
  2. HYDROCODONE [Concomitant]
     Active Substance: HYDROCODONE
  3. XANAX [Concomitant]
     Active Substance: ALPRAZOLAM
  4. ALLEGRA [Concomitant]
     Active Substance: FEXOFENADINE HYDROCHLORIDE
  5. FORTEO [Suspect]
     Active Substance: TERIPARATIDE
     Indication: OSTEOPOROSIS
     Dosage: UNK, UNKNOWN
     Route: 065
     Dates: start: 201602

REACTIONS (20)
  - Dry skin [Unknown]
  - Dyspnoea [Unknown]
  - Retching [Unknown]
  - Oropharyngeal pain [Unknown]
  - Neck pain [Unknown]
  - Weight decreased [Unknown]
  - Sleep disorder [Unknown]
  - Tooth loss [Unknown]
  - Abdominal discomfort [Unknown]
  - Anxiety [Unknown]
  - Pain in jaw [Unknown]
  - Dizziness postural [Unknown]
  - Cough [Unknown]
  - Pruritus [Unknown]
  - Depressed mood [Unknown]
  - Asthenia [Unknown]
  - Blood pressure increased [Unknown]
  - Chronic obstructive pulmonary disease [Unknown]
  - Cardiac disorder [Unknown]
  - Headache [Unknown]

NARRATIVE: CASE EVENT DATE: 201604
